FAERS Safety Report 7973891-5 (Version None)
Quarter: 2011Q4

REPORT INFORMATION
  Report Type: 
  Country: None (occurrence: None)
  Receive Date: 20111213
  Receipt Date: 20111209
  Transmission Date: 20120403
  Serious: Yes (Death, Hospitalization)
  Sender: FDA-Public Use
  Company Number: CA-BRISTOL-MYERS SQUIBB COMPANY-16066441

PATIENT
  Age: 70 Year
  Sex: Male

DRUGS (8)
  1. AMARYL [Concomitant]
  2. AVALIDE [Concomitant]
     Dosage: PRODUCT STRENTH IS 300/12.5MG 1 DF=12.5MG-300MG
  3. ATORVASTATIN [Concomitant]
  4. IPILIMUMAB [Suspect]
     Indication: MALIGNANT MELANOMA
     Dosage: NO OF COURSE: 1.
     Route: 042
     Dates: start: 20110908, end: 20110908
  5. METFORMIN HCL [Concomitant]
  6. METFORMIN HCL [Concomitant]
  7. DIAMICRON [Concomitant]
  8. HYDROMORPHONE HCL [Concomitant]

REACTIONS (7)
  - METASTATIC MALIGNANT MELANOMA [None]
  - DYSPEPSIA [None]
  - FATIGUE [None]
  - DECREASED APPETITE [None]
  - ALVEOLITIS [None]
  - TRANSAMINASES INCREASED [None]
  - DIARRHOEA [None]
